FAERS Safety Report 9705297 (Version 1)
Quarter: 2013Q4

REPORT INFORMATION
  Report Type: Spontaneous
  Country: CA (occurrence: CA)
  Receive Date: 20131122
  Receipt Date: 20131122
  Transmission Date: 20140711
  Serious: Yes (Death, Other)
  Sender: FDA-Public Use
  Company Number: CA-GILEAD-2013-0088500

PATIENT
  Age: 65 Year
  Sex: Female

DRUGS (11)
  1. AMBRISENTAN [Suspect]
     Indication: PRODUCT USED FOR UNKNOWN INDICATION
     Dosage: 5 MG, QD
     Route: 048
  2. SITAXENTAN [Suspect]
     Indication: PRODUCT USED FOR UNKNOWN INDICATION
     Route: 065
  3. ALDACTONE                          /00006201/ [Concomitant]
  4. AMITRIPTYLINE [Concomitant]
  5. L-THYROXINE                        /00068001/ [Concomitant]
  6. LASIX                              /00032601/ [Concomitant]
  7. LOSEC                              /00661201/ [Concomitant]
  8. OXYGEN [Concomitant]
     Route: 055
  9. REVATIO [Concomitant]
  10. SPIRIVA [Concomitant]
  11. SYMBICORT [Concomitant]

REACTIONS (1)
  - Death [Fatal]
